FAERS Safety Report 13735877 (Version 1)
Quarter: 2017Q3

REPORT INFORMATION
  Report Type: Spontaneous
  Country: US (occurrence: US)
  Receive Date: 20170710
  Receipt Date: 20170710
  Transmission Date: 20171127
  Serious: No
  Sender: FDA-Public Use
  Company Number: US-SUNOVION-2017SUN002789

PATIENT

DRUGS (4)
  1. LATUDA [Suspect]
     Active Substance: LURASIDONE HYDROCHLORIDE
     Route: 048
  2. SEROQUEL [Concomitant]
     Active Substance: QUETIAPINE FUMARATE
  3. LAMICTAL [Concomitant]
     Active Substance: LAMOTRIGINE
  4. SUBLINOX [Concomitant]
     Active Substance: ZOLPIDEM TARTRATE

REACTIONS (2)
  - Increased appetite [Unknown]
  - Memory impairment [Unknown]
